FAERS Safety Report 9526796 (Version 2)
Quarter: 2014Q1

REPORT INFORMATION
  Report Type: Spontaneous
  Country: FR (occurrence: FR)
  Receive Date: 20130916
  Receipt Date: 20140129
  Transmission Date: 20141002
  Serious: Yes (Hospitalization)
  Sender: FDA-Public Use
  Company Number: FR-GLAXOSMITHKLINE-B0920992A

PATIENT
  Age: 82 Year
  Sex: Male

DRUGS (7)
  1. ARIXTRA [Suspect]
     Indication: PRODUCT USED FOR UNKNOWN INDICATION
     Route: 065
     Dates: start: 20130730, end: 20130823
  2. KARDEGIC [Suspect]
     Indication: PRODUCT USED FOR UNKNOWN INDICATION
     Dosage: 160MG PER DAY
     Route: 048
     Dates: start: 20130714, end: 20130823
  3. PRADAXA [Suspect]
     Indication: ATRIAL FIBRILLATION
     Dosage: 110MG TWICE PER DAY
     Route: 048
     Dates: start: 20130823, end: 20130825
  4. PROZAC [Suspect]
     Indication: PRODUCT USED FOR UNKNOWN INDICATION
     Dosage: 20MG PER DAY
     Route: 048
     Dates: end: 20130825
  5. SOTALEX [Concomitant]
     Dosage: 40MG TWICE PER DAY
     Route: 048
     Dates: start: 20130823, end: 20130825
  6. COVERSYL [Concomitant]
     Dosage: 5MG PER DAY
     Route: 048
     Dates: start: 20130823, end: 20130825
  7. NATISPRAY [Concomitant]
     Route: 060
     Dates: end: 20130825

REACTIONS (8)
  - Cerebral haematoma [Recovered/Resolved with Sequelae]
  - VIIth nerve paralysis [Recovered/Resolved with Sequelae]
  - Aphasia [Recovered/Resolved with Sequelae]
  - Monoplegia [Recovered/Resolved with Sequelae]
  - Headache [Recovered/Resolved]
  - Vomiting [Recovered/Resolved]
  - Extensor plantar response [Unknown]
  - Drug interaction [Unknown]
